FAERS Safety Report 4449620-9 (Version None)
Quarter: 2004Q3

REPORT INFORMATION
  Report Type: 
  Country: None (occurrence: None)
  Receive Date: 20040913
  Receipt Date: 20040827
  Transmission Date: 20050211
  Serious: Yes (Life-Threatening, Hospitalization)
  Sender: FDA-Public Use
  Company Number: 04P-163-0271410-01

PATIENT
  Age: 60 Year
  Sex: Female
  Weight: 88.8 kg

DRUGS (17)
  1. TARKA [Suspect]
     Indication: ALBUMINURIA
     Dosage: 1 IN  1 D
     Dates: start: 20040820, end: 20040821
  2. ROSIGLITAZONE MALEATE [Concomitant]
  3. INSULIN INJECTION, ISOPHANE [Concomitant]
  4. CLOPIDOGREL BISULFATE [Concomitant]
  5. LISINOPRIL [Concomitant]
  6. TORSEMIDE [Concomitant]
  7. METOCLOPRAMIDE [Concomitant]
  8. ATORVASTATIN CALCIUM [Concomitant]
  9. FUROSEMIDE [Concomitant]
  10. LABETALOL HCL [Concomitant]
  11. CLONIDINE HCL [Concomitant]
  12. AMLODIPINE BESYLATE [Concomitant]
  13. ACETYLSALICYLIC ACID [Concomitant]
  14. MULTI-VITAMINS [Concomitant]
  15. FOLIC ACID [Concomitant]
  16. PANTOPRAZOLE [Concomitant]
  17. GLIPIZIDE [Concomitant]

REACTIONS (11)
  - BLOOD POTASSIUM INCREASED [None]
  - CARDIOVASCULAR FUNCTION TEST ABNORMAL [None]
  - CHEST PAIN [None]
  - DIZZINESS [None]
  - DYSPNOEA [None]
  - HYPERHIDROSIS [None]
  - LOSS OF CONSCIOUSNESS [None]
  - NODAL ARRHYTHMIA [None]
  - OEDEMA PERIPHERAL [None]
  - PALPITATIONS [None]
  - SINUS BRADYCARDIA [None]
